FAERS Safety Report 8455112-2 (Version None)
Quarter: 2012Q2

REPORT INFORMATION
  Report Type: 
  Country: None (occurrence: None)
  Receive Date: 20120621
  Receipt Date: 20120608
  Transmission Date: 20120825
  Serious: Yes (Other)
  Sender: FDA-Public Use
  Company Number: JP-PFIZER INC-2012147531

PATIENT
  Age: 52 Year
  Sex: Male

DRUGS (8)
  1. ZETIA [Concomitant]
     Dosage: UNK
  2. AMARYL [Concomitant]
     Dosage: UNK
  3. LIPITOR [Suspect]
     Dosage: 5 MG, DAILY
     Route: 048
  4. MICARDIS [Concomitant]
     Dosage: UNK
  5. URSO 250 [Concomitant]
     Dosage: UNK
  6. SITAGLIPTIN PHOSPHATE [Concomitant]
     Dosage: UNK
  7. METFORMIN HCL [Concomitant]
     Dosage: UNK
  8. ALLOPURINOL [Concomitant]
     Dosage: UNK

REACTIONS (1)
  - DIABETES MELLITUS [None]
